FAERS Safety Report 6305595-9 (Version None)
Quarter: 2009Q3

REPORT INFORMATION
  Report Type: 
  Country: None (occurrence: None)
  Receive Date: 20090811
  Receipt Date: 20090205
  Transmission Date: 20100115
  Serious: Yes (Other)
  Sender: FDA-Public Use
  Company Number: GB-GILEAD-2008-0018893

PATIENT
  Age: 31 Year
  Sex: Female

DRUGS (1)
  1. ATRIPLA [Suspect]
     Indication: RETROVIRAL INFECTION
     Route: 048
     Dates: start: 20080525, end: 20080801

REACTIONS (1)
  - MULTIPLE-DRUG RESISTANCE [None]
